FAERS Safety Report 10133498 (Version 3)
Quarter: 2014Q3

REPORT INFORMATION
  Report Type: Spontaneous
  Country: IT (occurrence: IT)
  Receive Date: 20140428
  Receipt Date: 20140812
  Transmission Date: 20150326
  Serious: Yes (Hospitalization)
  Sender: FDA-Public Use
  Company Number: PHHY2014IT048637

PATIENT
  Age: 58 Year
  Sex: Female

DRUGS (5)
  1. LANSOPRAZOLE. [Concomitant]
     Active Substance: LANSOPRAZOLE
     Dosage: 15 MG
     Route: 048
  2. TASIGNA [Suspect]
     Active Substance: NILOTINIB
     Indication: CHRONIC MYELOID LEUKAEMIA
     Dosage: 600 MG, DAILY
     Route: 048
     Dates: start: 20130621
  3. ALLOPURINOL. [Concomitant]
     Active Substance: ALLOPURINOL
     Dosage: 300 MG
     Route: 048
  4. TASIGNA [Suspect]
     Active Substance: NILOTINIB
     Dosage: 300 MG, DAILY
     Route: 048
  5. TAPAZOLE [Suspect]
     Active Substance: METHIMAZOLE
     Dosage: 1 DF, BID
     Dates: start: 20131203, end: 20140104

REACTIONS (5)
  - Emphysema [Unknown]
  - Hypothyroidism [Recovered/Resolved]
  - Hyperthyroidism [Recovered/Resolved]
  - Autoimmune thyroiditis [Recovered/Resolved]
  - Interstitial lung disease [Recovered/Resolved]

NARRATIVE: CASE EVENT DATE: 20131122
